FAERS Safety Report 15228527 (Version 1)
Quarter: 2018Q3

REPORT INFORMATION
  Report Type: Report from Study
  Country: US (occurrence: US)
  Receive Date: 20180801
  Receipt Date: 20180801
  Transmission Date: 20181010
  Serious: Yes (Other)
  Sender: FDA-Public Use
  Company Number: US-MYLANLABS-2018M1056939

PATIENT
  Age: 60 Year
  Sex: Female

DRUGS (3)
  1. PEMETREXED. [Concomitant]
     Active Substance: PEMETREXED
     Indication: LUNG ADENOCARCINOMA
     Route: 065
  2. CARBOPLATIN. [Concomitant]
     Active Substance: CARBOPLATIN
     Indication: LUNG ADENOCARCINOMA
     Route: 065
  3. ERLOTINIB [Suspect]
     Active Substance: ERLOTINIB
     Indication: LUNG ADENOCARCINOMA
     Route: 065

REACTIONS (1)
  - Drug resistance [Unknown]
